FAERS Safety Report 9747308 (Version 1)
Quarter: 2013Q4

REPORT INFORMATION
  Report Type: Spontaneous
  Country: US (occurrence: US)
  Receive Date: 20131212
  Receipt Date: 20131212
  Transmission Date: 20140711
  Serious: No
  Sender: FDA-Public Use
  Company Number: US-009507513-1311USA012013

PATIENT
  Age: 20 Year
  Sex: 0
  Weight: 124.26 kg

DRUGS (1)
  1. NEXPLANON [Suspect]
     Dosage: UNK
     Dates: start: 20131118

REACTIONS (2)
  - Device difficult to use [Unknown]
  - Product quality issue [Unknown]
